FAERS Safety Report 8947293 (Version 1)
Quarter: 2012Q4

REPORT INFORMATION
  Report Type: 
  Country: AU (occurrence: AU)
  Receive Date: 20121205
  Receipt Date: 20121205
  Transmission Date: 20130627
  Serious: Yes (Life-Threatening, Hospitalization, Other)
  Sender: FDA-Public Use
  Company Number: AU-ELI_LILLY_AND_COMPANY-AU201211007270

PATIENT
  Age: 0 Year

DRUGS (6)
  1. OLANZAPINE [Suspect]
     Dosage: 7.5 mg, qd
     Route: 064
  2. ARIPIPRAZOLE [Concomitant]
     Dosage: 5 mg, qd
     Route: 064
  3. RISPERIDONE [Concomitant]
     Dosage: 1 mg, qd
     Route: 064
  4. LITHIUM CARBONATE [Concomitant]
     Dosage: 1 DF, unknown
     Route: 064
  5. ZIPRASIDONE [Concomitant]
     Dosage: 1 DF, unknown
     Route: 064
  6. METFORMIN [Concomitant]
     Dosage: 1 DF, unknown
     Route: 064

REACTIONS (3)
  - Neonatal respiratory distress syndrome [Recovered/Resolved]
  - Foetal exposure during pregnancy [Recovered/Resolved]
  - Maternal drugs affecting foetus [None]
